FAERS Safety Report 5282728-7 (Version None)
Quarter: 2007Q1

REPORT INFORMATION
  Report Type: 
  Country: None (occurrence: None)
  Receive Date: 20061226
  Receipt Date: 20060825
  Transmission Date: 20070707
  Serious: No
  Sender: FDA-Public Use
  Company Number: PHEH2006US10981

PATIENT
  Age: 49 Year
  Sex: Female

DRUGS (3)
  1. ENABLEX [Suspect]
     Indication: POLLAKIURIA
     Dosage: 7.5 MG, QD
  2. TYLENOL [Concomitant]
  3. ADVIL [Concomitant]

REACTIONS (1)
  - ABDOMINAL DISTENSION [None]
